FAERS Safety Report 15600822 (Version 2)
Quarter: 2019Q1

REPORT INFORMATION
  Report Type: Report from Study
  Country: FR (occurrence: FR)
  Receive Date: 20181109
  Receipt Date: 20190110
  Transmission Date: 20190417
  Serious: Yes (Hospitalization)
  Sender: FDA-Public Use
  Company Number: FR-TEVA-2018-FR-973944

PATIENT
  Age: 77 Year
  Sex: Male

DRUGS (3)
  1. RITUXIMAB. [Concomitant]
     Active Substance: RITUXIMAB
     Indication: CHRONIC LYMPHOCYTIC LEUKAEMIA
  2. BENDAMUSTINE [Concomitant]
     Active Substance: BENDAMUSTINE
     Indication: CHRONIC LYMPHOCYTIC LEUKAEMIA
  3. VALSARTAN. [Suspect]
     Active Substance: VALSARTAN
     Dosage: HE WAS TAKING THIS TREATMENT FOR MORE THAN 14 YEARS
     Route: 065

REACTIONS (3)
  - Acquired C1 inhibitor deficiency [Recovered/Resolved]
  - Angioedema [Recovered/Resolved]
  - Abdominal pain [Unknown]
